FAERS Safety Report 8329563-0 (Version None)
Quarter: 2012Q2

REPORT INFORMATION
  Report Type: 
  Country: None (occurrence: None)
  Receive Date: 20120502
  Receipt Date: 20041210
  Transmission Date: 20120825
  Serious: Yes (Hospitalization)
  Sender: FDA-Public Use
  Company Number: FR-ROCHE-389041

PATIENT
  Age: 63 Year
  Sex: Female

DRUGS (2)
  1. XELODA [Suspect]
     Indication: BREAST CANCER
     Route: 048
     Dates: start: 20040830, end: 20040913
  2. NAVELBINE [Suspect]
     Indication: PRODUCT USED FOR UNKNOWN INDICATION
     Dosage: GIVEN ON DAY ONE AND DAY EIGHT. GIVEN IN THE CONTEXT OF A XELONAV PROTOCOL
     Route: 048

REACTIONS (1)
  - FEBRILE BONE MARROW APLASIA [None]
